FAERS Safety Report 15096487 (Version 1)
Quarter: 2018Q3

REPORT INFORMATION
  Report Type: Spontaneous
  Country: DK (occurrence: DK)
  Receive Date: 20180702
  Receipt Date: 20180702
  Transmission Date: 20181010
  Serious: Yes (Death, Hospitalization)
  Sender: FDA-Public Use
  Company Number: PHHY2018DK032545

PATIENT
  Age: 80 Year
  Sex: Female

DRUGS (1)
  1. METHOTREXATE. [Suspect]
     Active Substance: METHOTREXATE
     Indication: GOUT
     Dosage: 5 DF, QD
     Route: 065

REACTIONS (9)
  - Drug dispensing error [Unknown]
  - Pallor [Unknown]
  - Infection [Unknown]
  - Death [Fatal]
  - Diarrhoea [Unknown]
  - Swollen tongue [Unknown]
  - Incorrect dose administered [Unknown]
  - Swelling face [Unknown]
  - Toxicity to various agents [Unknown]
